FAERS Safety Report 5036667-7 (Version None)
Quarter: 2006Q2

REPORT INFORMATION
  Report Type: 
  Country: None (occurrence: None)
  Receive Date: 20060616
  Receipt Date: 20060505
  Transmission Date: 20061013
  Serious: No
  Sender: FDA-Public Use
  Company Number: 2006RL000163

PATIENT
  Age: 73 Year
  Sex: Male
  Weight: 87.0906 kg

DRUGS (3)
  1. OMACOR [Suspect]
     Indication: LOW DENSITY LIPOPROTEIN INCREASED
     Dosage: 2 GM;BID;PO
     Route: 048
     Dates: start: 20060503, end: 20060504
  2. ASPIRIN [Concomitant]
  3. CALAN [Concomitant]

REACTIONS (3)
  - BLOOD PRESSURE DECREASED [None]
  - CONTUSION [None]
  - OEDEMA PERIPHERAL [None]
